FAERS Safety Report 21137241 (Version 1)
Quarter: 2022Q3

REPORT INFORMATION
  Report Type: Spontaneous
  Country: US (occurrence: None)
  Receive Date: 20220727
  Receipt Date: 20220727
  Transmission Date: 20221027
  Serious: Yes (Hospitalization, Disabling, Other)
  Sender: FDA-Public Use
  Company Number: None

PATIENT
  Age: 35 Year
  Sex: Female

DRUGS (1)
  1. EPCLUSA [Suspect]
     Active Substance: SOFOSBUVIR\VELPATASVIR

REACTIONS (28)
  - Rash [None]
  - Joint swelling [None]
  - Peripheral swelling [None]
  - Weight decreased [None]
  - Decreased appetite [None]
  - Headache [None]
  - Amnesia [None]
  - Depressed level of consciousness [None]
  - Pain [None]
  - Arthralgia [None]
  - Malaise [None]
  - Fatigue [None]
  - Depression [None]
  - Fear [None]
  - Near death experience [None]
  - Stress [None]
  - Emotional disorder [None]
  - Mood swings [None]
  - Contusion [None]
  - Burning sensation [None]
  - Oropharyngeal pain [None]
  - Pyrexia [None]
  - Influenza like illness [None]
  - Asthenia [None]
  - Abnormal dreams [None]
  - Skin disorder [None]
  - Oral herpes [None]
  - Decreased appetite [None]

NARRATIVE: CASE EVENT DATE: 20220620
